FAERS Safety Report 18817523 (Version 1)
Quarter: 2021Q1

REPORT INFORMATION
  Report Type: Spontaneous
  Country: FR (occurrence: FR)
  Receive Date: 20210201
  Receipt Date: 20210201
  Transmission Date: 20210419
  Serious: Yes (Other)
  Sender: FDA-Public Use
  Company Number: FR-PFIZER INC-2021069265

PATIENT
  Age: 46 Year
  Sex: Male

DRUGS (3)
  1. BEXAROTENE. [Suspect]
     Active Substance: BEXAROTENE
     Indication: T-CELL LYMPHOMA
     Dosage: UNK
     Route: 065
  2. METHOTREXATE SODIUM. [Suspect]
     Active Substance: METHOTREXATE SODIUM
     Indication: T-CELL LYMPHOMA
     Dosage: UNK
  3. LIPOSOMAL DOXORUBICIN HCL [Suspect]
     Active Substance: DOXORUBICIN HYDROCHLORIDE
     Indication: T-CELL LYMPHOMA
     Dosage: UNK
     Route: 065

REACTIONS (2)
  - Visceral leishmaniasis [Unknown]
  - Immunosuppression [Unknown]
